FAERS Safety Report 12885540 (Version 1)
Quarter: 2016Q4

REPORT INFORMATION
  Report Type: Spontaneous
  Country: US (occurrence: US)
  Receive Date: 20161025
  Receipt Date: 20161025
  Transmission Date: 20170207
  Serious: Yes (Hospitalization)
  Sender: FDA-Public Use
  Company Number: None

PATIENT
  Age: 14 Year
  Sex: Male
  Weight: 86.2 kg

DRUGS (10)
  1. MERCAPTOPURINE. [Suspect]
     Active Substance: MERCAPTOPURINE
     Dates: end: 20160914
  2. DOXORUBICIN HYDROCHLORIDE. [Suspect]
     Active Substance: DOXORUBICIN HYDROCHLORIDE
     Dates: end: 20161007
  3. DAUNORUBICIN [Suspect]
     Active Substance: DAUNORUBICIN
     Dates: end: 20160429
  4. ONCASPAR [Suspect]
     Active Substance: PEGASPARGASE
     Dates: end: 20161005
  5. DEXAMETHASONE. [Suspect]
     Active Substance: DEXAMETHASONE
     Dates: end: 20161009
  6. CYTARABINE. [Suspect]
     Active Substance: CYTARABINE
     Dates: end: 20160623
  7. CYCLOPHOSPHAMIDE. [Suspect]
     Active Substance: CYCLOPHOSPHAMIDE
     Dates: end: 20160613
  8. METHOTREXATE. [Suspect]
     Active Substance: METHOTREXATE
     Dates: end: 20160923
  9. PREDNISONE. [Suspect]
     Active Substance: PREDNISONE
     Dates: end: 20160506
  10. VINCRISTINE SULFATE. [Suspect]
     Active Substance: VINCRISTINE SULFATE
     Dates: end: 20161007

REACTIONS (14)
  - Fatigue [None]
  - Tachypnoea [None]
  - Nocturia [None]
  - Nausea [None]
  - Confusional state [None]
  - Speech disorder [None]
  - Lipase increased [None]
  - Abdominal pain lower [None]
  - Diabetic ketoacidosis [None]
  - Vomiting [None]
  - Renal failure [None]
  - Lethargy [None]
  - Blood glucose increased [None]
  - Incoherent [None]

NARRATIVE: CASE EVENT DATE: 20161011
